FAERS Safety Report 6164689-1 (Version None)
Quarter: 2009Q2

REPORT INFORMATION
  Report Type: 
  Country: None (occurrence: None)
  Receive Date: 20090423
  Receipt Date: 20090414
  Transmission Date: 20091009
  Serious: Yes (Hospitalization)
  Sender: FDA-Public Use
  Company Number: DE-ASTRAZENECA-2009PK01062

PATIENT
  Age: 84 Year
  Sex: Female
  Weight: 57 kg

DRUGS (11)
  1. SYMBICORT TURBUHALER ^DRACO^ [Interacting]
     Indication: CHRONIC OBSTRUCTIVE PULMONARY DISEASE
     Route: 055
     Dates: start: 20000101
  2. PREDNISOLONE [Suspect]
     Indication: CHRONIC OBSTRUCTIVE PULMONARY DISEASE
     Route: 048
     Dates: start: 20070101
  3. XIPAMIDE [Interacting]
     Indication: HYPERTENSION
     Route: 048
     Dates: start: 20081201
  4. L-THYROXIN ^HENNING BERLIN^ [Concomitant]
     Indication: HYPOTHYROIDISM
     Route: 048
     Dates: start: 19940101
  5. RADEDORM [Concomitant]
     Indication: SLEEP DISORDER
     Route: 048
     Dates: start: 20060901
  6. LEVOCETIRIZINE DIHYDROCHLORIDE [Concomitant]
     Indication: MULTIPLE ALLERGIES
     Route: 048
     Dates: start: 20080901
  7. DIGITOXIN TAB [Concomitant]
     Indication: CARDIAC FAILURE
     Dosage: 5 DAYS A WEEK
     Route: 048
     Dates: start: 20060901
  8. PANTOZOL [Concomitant]
     Indication: PROPHYLAXIS AGAINST GASTROINTESTINAL ULCER
     Route: 048
  9. SPIRIVA [Concomitant]
     Indication: CHRONIC OBSTRUCTIVE PULMONARY DISEASE
     Route: 055
     Dates: start: 20000101
  10. NULYTELY [Concomitant]
     Indication: CONSTIPATION
     Route: 048
     Dates: start: 20050101
  11. LACTULOSE [Concomitant]
     Indication: CONSTIPATION
     Route: 048
     Dates: start: 20050101

REACTIONS (1)
  - OSTEOPOROTIC FRACTURE [None]
